FAERS Safety Report 4963864-9 (Version None)
Quarter: 2006Q1

REPORT INFORMATION
  Report Type: 
  Country: None (occurrence: None)
  Receive Date: 20060330
  Receipt Date: 20060310
  Transmission Date: 20060701
  Serious: Yes (Hospitalization)
  Sender: FDA-Public Use
  Company Number: FR200603002757

PATIENT
  Age: 76 Year
  Sex: Female

DRUGS (5)
  1. FORTEO [Suspect]
     Indication: OSTEOPOROSIS
     Dosage: 20 UG, DAILY (1/D), SUBCUTANEOUS
     Route: 058
     Dates: start: 20041020, end: 20051201
  2. FORTEO [Concomitant]
  3. ACETAMINOPHEN W/ PROPOXYPHENE HCL [Concomitant]
  4. LEXOMIL (BROMAZEPAM) TABLET [Concomitant]
  5. MEBEVERINE (MEBEVERINE) [Concomitant]

REACTIONS (2)
  - FEMORAL ARTERY OCCLUSION [None]
  - SILENT MYOCARDIAL INFARCTION [None]
